FAERS Safety Report 7099335-6 (Version None)
Quarter: 2010Q4

REPORT INFORMATION
  Report Type: 
  Country: None (occurrence: None)
  Receive Date: 20101112
  Receipt Date: 20080716
  Transmission Date: 20110411
  Serious: No
  Sender: FDA-Public Use
  Company Number: US-KINGPHARMUSA00001-K200800842

PATIENT
  Sex: Male

DRUGS (1)
  1. AVINZA [Suspect]
     Indication: BACK PAIN
     Dosage: 120 MG, QD
     Dates: start: 20080715

REACTIONS (2)
  - BREAKTHROUGH PAIN [None]
  - WITHDRAWAL SYNDROME [None]
